FAERS Safety Report 16301509 (Version 1)
Quarter: 2019Q2

REPORT INFORMATION
  Report Type: Spontaneous
  Country: US (occurrence: US)
  Receive Date: 20190511
  Receipt Date: 20190511
  Transmission Date: 20190711
  Serious: No
  Sender: FDA-Public Use
  Company Number: US-TEVA-2019-US-1043009

PATIENT
  Sex: Male

DRUGS (1)
  1. TESTOSTERONE GEL [Suspect]
     Active Substance: TESTOSTERONE
     Dosage: THERAPY SITE: LEG
     Dates: start: 20190415

REACTIONS (2)
  - Product substitution issue [Unknown]
  - Application site pruritus [Unknown]

NARRATIVE: CASE EVENT DATE: 20190415
